FAERS Safety Report 5906778-X (Version None)
Quarter: 2008Q3

REPORT INFORMATION
  Report Type: 
  Country: None (occurrence: None)
  Receive Date: 20080930
  Receipt Date: 20080916
  Transmission Date: 20090109
  Serious: Yes (Hospitalization)
  Sender: FDA-Public Use
  Company Number: 1000001090

PATIENT
  Age: 84 Year
  Sex: Female

DRUGS (6)
  1. ESCITALOPRAM [Suspect]
     Dosage: 5 MG (5 MG, 1 IN 1 D), ORAL
     Route: 048
     Dates: start: 20080721, end: 20080730
  2. VASTAREL [Concomitant]
  3. CACIT D3 (POWDER) [Concomitant]
  4. TENORMIN [Concomitant]
  5. MINISINTROM [Concomitant]
  6. EUPRESSYL (30 MILLIGRAM, CAPSULES) [Concomitant]

REACTIONS (3)
  - CONFUSIONAL STATE [None]
  - DEMENTIA [None]
  - PYREXIA [None]
